FAERS Safety Report 15460685 (Version 1)
Quarter: 2018Q4

REPORT INFORMATION
  Report Type: Spontaneous
  Country: NL (occurrence: NL)
  Receive Date: 20181003
  Receipt Date: 20181003
  Transmission Date: 20190204
  Serious: Yes (Other)
  Sender: FDA-Public Use
  Company Number: NL-TEVA-2018-NL-960806

PATIENT
  Age: 65 Year
  Sex: Male
  Weight: 81 kg

DRUGS (9)
  1. SPIRONOLACTON TABLET, 25 MG [Suspect]
     Active Substance: SPIRONOLACTONE
     Indication: HYPERTENSION
     Dosage: 25 MILLIGRAM DAILY;
     Route: 065
     Dates: start: 20180725, end: 20180813
  2. SALOFALK [Concomitant]
     Active Substance: MESALAMINE
     Dosage: 1 GRAM DAILY;
  3. ZINKCITRAAT, 3MG [Concomitant]
  4. CALCIUMCARBONAAT 300 MG [Concomitant]
  5. SPIRONOLACTON TABLET, 25 MG [Suspect]
     Active Substance: SPIRONOLACTONE
     Dosage: 12.5 MG PER DAG
  6. CHOLECALCIFEROL (D3) SUPPLEMENT, 25 UG [Concomitant]
  7. MAGFNESIUMOXIDE, 125MG [Concomitant]
  8. NOVORAPID [Concomitant]
     Active Substance: INSULIN ASPART
     Dosage: AS REQUIRED
  9. TOUJEO [Concomitant]
     Active Substance: INSULIN GLARGINE
     Dosage: 44 IU (INTERNATIONAL UNIT) DAILY;

REACTIONS (2)
  - Diabetes mellitus inadequate control [Recovered/Resolved]
  - Hyperglycaemia [Recovered/Resolved]

NARRATIVE: CASE EVENT DATE: 20180802
